FAERS Safety Report 5217527-5 (Version None)
Quarter: 2007Q1

REPORT INFORMATION
  Report Type: 
  Country: None (occurrence: None)
  Receive Date: 20070119
  Receipt Date: 20070108
  Transmission Date: 20070707
  Serious: No
  Sender: FDA-Public Use
  Company Number: 2007-152682-NL

PATIENT
  Age: 65 Year
  Sex: Female

DRUGS (1)
  1. DEXAMETHASONE [Suspect]
     Dates: start: 20061117, end: 20061120

REACTIONS (4)
  - DYSPHONIA [None]
  - GAIT DISTURBANCE [None]
  - OVERDOSE [None]
  - TREMOR [None]
